FAERS Safety Report 5937954-8 (Version None)
Quarter: 2008Q4

REPORT INFORMATION
  Report Type: 
  Country: None (occurrence: None)
  Receive Date: 20081031
  Receipt Date: 20081021
  Transmission Date: 20090506
  Serious: Yes (Death, Other)
  Sender: FDA-Public Use
  Company Number: AU-PFIZER INC-2008088814

PATIENT
  Age: 71 Year
  Sex: Male

DRUGS (2)
  1. LIPITOR [Suspect]
     Dates: start: 20080310
  2. PRAVACHOL [Suspect]

REACTIONS (8)
  - ASTHENIA [None]
  - DEATH [None]
  - FALL [None]
  - MALAISE [None]
  - MUSCULAR WEAKNESS [None]
  - NAUSEA [None]
  - RHABDOMYOLYSIS [None]
  - WEIGHT DECREASED [None]
